APPROVED DRUG PRODUCT: OLOPATADINE HYDROCHLORIDE
Active Ingredient: OLOPATADINE HYDROCHLORIDE
Strength: EQ 0.2% BASE
Dosage Form/Route: SOLUTION/DROPS;OPHTHALMIC
Application: A215006 | Product #001
Applicant: SOMERSET THERAPEUTICS LLC
Approved: Dec 18, 2024 | RLD: No | RS: No | Type: OTC